FAERS Safety Report 8126093-6 (Version None)
Quarter: 2012Q1

REPORT INFORMATION
  Report Type: 
  Country: None (occurrence: None)
  Receive Date: 20120209
  Receipt Date: 20120131
  Transmission Date: 20120608
  Serious: Yes (Other)
  Sender: FDA-Public Use
  Company Number: PHEH2012US002790

PATIENT
  Sex: Male

DRUGS (3)
  1. RAPAMUNE [Concomitant]
  2. GLEEVEC [Suspect]
     Indication: ACUTE LYMPHOCYTIC LEUKAEMIA
     Dosage: 400 MG, QD
     Route: 048
  3. PREDNISONE [Concomitant]

REACTIONS (9)
  - SKIN LESION [None]
  - GRAFT VERSUS HOST DISEASE [None]
  - SCLERODERMA [None]
  - EYE DISORDER [None]
  - PAIN IN EXTREMITY [None]
  - OEDEMA [None]
  - SKIN HYPERPIGMENTATION [None]
  - CUSHINGOID [None]
  - JOINT SWELLING [None]
